FAERS Safety Report 10357453 (Version 1)
Quarter: 2014Q3

REPORT INFORMATION
  Report Type: Spontaneous
  Country: US (occurrence: None)
  Receive Date: 20140730
  Receipt Date: 20140730
  Transmission Date: 20150326
  Serious: Yes (Other)
  Sender: FDA-Public Use
  Company Number: 001774676A

PATIENT
  Age: 11 Year
  Sex: Female

DRUGS (2)
  1. X OUT CLEANSING BODY BAR [Suspect]
     Active Substance: SALICYLIC ACID
     Indication: ACNE
     Dosage: DERMAL
     Dates: start: 20140409, end: 20140419
  2. X-OUT WASH-IN TREATMENT [Suspect]
     Active Substance: BENZOYL PEROXIDE
     Indication: ACNE
     Dosage: DERMAL
     Dates: start: 20140409, end: 20140419

REACTIONS (2)
  - Urticaria [None]
  - Erythema [None]

NARRATIVE: CASE EVENT DATE: 20140419
